FAERS Safety Report 15601309 (Version 1)
Quarter: 2018Q4

REPORT INFORMATION
  Report Type: Spontaneous
  Country: CA (occurrence: CA)
  Receive Date: 20181109
  Receipt Date: 20181109
  Transmission Date: 20190205
  Serious: Yes (Hospitalization, Other)
  Sender: FDA-Public Use
  Company Number: CA-ASTELLAS-2018US047327

PATIENT
  Age: 69 Year
  Sex: Female

DRUGS (1)
  1. TACROLIMUS. [Suspect]
     Active Substance: TACROLIMUS
     Indication: LIVER TRANSPLANT
     Dosage: UNK UNK, UNKNOWN FREQ.
     Route: 065

REACTIONS (6)
  - Subdural haematoma [Unknown]
  - Subdural empyema [Recovered/Resolved]
  - Renal impairment [Unknown]
  - Escherichia infection [Recovered/Resolved]
  - Head injury [Unknown]
  - Urinary tract infection [Recovered/Resolved]
